FAERS Safety Report 12948439 (Version 1)
Quarter: 2016Q4

REPORT INFORMATION
  Report Type: Spontaneous
  Country: US (occurrence: US)
  Receive Date: 20161116
  Receipt Date: 20161116
  Transmission Date: 20170207
  Serious: Yes (Other)
  Sender: FDA-Public Use
  Company Number: US-LPDUSPRD-20161027

PATIENT
  Age: 68 Month

DRUGS (2)
  1. MELPHALAN [Suspect]
     Active Substance: MELPHALAN
     Dosage: DOSE UNKNOWN
     Route: 065
  2. BUSULFAN INJECTION (0517-0920-01) [Suspect]
     Active Substance: BUSULFAN
     Dosage: RANGE 0.80-1 MG/KG EVERY 6 HRS
     Route: 042

REACTIONS (1)
  - Pulmonary hypertension [Unknown]
